FAERS Safety Report 7200436-X (Version None)
Quarter: 2010Q4

REPORT INFORMATION
  Report Type: 
  Country: None (occurrence: None)
  Receive Date: 20101228
  Receipt Date: 20101220
  Transmission Date: 20110411
  Serious: Yes (Other)
  Sender: FDA-Public Use
  Company Number: US-MERCK-92021092

PATIENT
  Age: 60 Year
  Sex: Female

DRUGS (11)
  1. MEVACOR [Suspect]
     Indication: HYPERCHOLESTEROLAEMIA
     Route: 048
     Dates: start: 19880301, end: 19890101
  2. PRILOSEC [Concomitant]
     Route: 048
  3. HISMANAL [Concomitant]
     Route: 065
  4. CORTICOSTEROID [Concomitant]
     Route: 065
  5. LANOXIN [Concomitant]
     Route: 065
  6. TOLECTIN [Concomitant]
     Route: 065
  7. PLAQUENIL [Concomitant]
     Route: 065
  8. ENTEX [Concomitant]
     Route: 065
  9. KLONOPIN [Concomitant]
     Route: 065
  10. VANCENASE [Concomitant]
     Route: 065
  11. THYROID [Concomitant]
     Route: 065

REACTIONS (13)
  - ALOPECIA [None]
  - ARTHROPATHY [None]
  - CHRONIC FATIGUE SYNDROME [None]
  - DIABETES MELLITUS [None]
  - DRUG RASH WITH EOSINOPHILIA AND SYSTEMIC SYMPTOMS [None]
  - DYSPNOEA [None]
  - MALAISE [None]
  - MUSCLE SPASMS [None]
  - MYOCARDIAL INFARCTION [None]
  - OEDEMA PERIPHERAL [None]
  - PRURITUS [None]
  - RASH ERYTHEMATOUS [None]
  - SICCA SYNDROME [None]
